FAERS Safety Report 21801898 (Version 1)
Quarter: 2022Q4

REPORT INFORMATION
  Report Type: Report from Study
  Country: US (occurrence: US)
  Receive Date: 20221230
  Receipt Date: 20221230
  Transmission Date: 20230112
  Serious: No
  Sender: FDA-Public Use
  Company Number: US-ACORDA-ACO_172177_2022

PATIENT
  Sex: Male

DRUGS (5)
  1. INBRIJA [Suspect]
     Active Substance: LEVODOPA
     Indication: Parkinson^s disease
     Dosage: 2 DOSAGE FORM (84 MG), PRN (NOT TO EXCEED 5 DOSES A DAY)
     Dates: start: 20200615
  2. INBRIJA [Suspect]
     Active Substance: LEVODOPA
     Indication: On and off phenomenon
  3. RYTARY [Concomitant]
     Active Substance: CARBIDOPA\LEVODOPA
     Indication: Product used for unknown indication
     Dosage: 61.25/145, 4 DOSAGE FORM, QID
     Route: 065
  4. RYTARY [Concomitant]
     Active Substance: CARBIDOPA\LEVODOPA
     Dosage: 23.75/95 MG, 1 DOSAGE FORM, QID
     Route: 065
  5. CARBIDOPA/LEVODOPA DAVUR [Concomitant]
     Indication: Product used for unknown indication
     Dosage: 25MG/100MG, 3 DOSAGE FORM, TID
     Route: 065

REACTIONS (6)
  - Device use issue [Unknown]
  - Product residue present [Unknown]
  - Choking [Not Recovered/Not Resolved]
  - Device use issue [Unknown]
  - Nasal mucosal discolouration [Not Recovered/Not Resolved]
  - Cough [Not Recovered/Not Resolved]
